FAERS Safety Report 17929245 (Version 1)
Quarter: 2020Q2

REPORT INFORMATION
  Report Type: Spontaneous
  Country: US (occurrence: US)
  Receive Date: 20200623
  Receipt Date: 20200623
  Transmission Date: 20200714
  Serious: No
  Sender: FDA-Public Use
  Company Number: US-ALLERGAN-1928995US

PATIENT
  Age: 55 Year
  Sex: Female

DRUGS (1)
  1. NORETHINDRONE ACETATE;ETHINYL ESTRADIOL - BP [Suspect]
     Active Substance: ETHINYL ESTRADIOL\NORETHINDRONE ACETATE
     Indication: PRODUCT USED FOR UNKNOWN INDICATION

REACTIONS (2)
  - Hormone level abnormal [Unknown]
  - Hypertrichosis [Unknown]
